FAERS Safety Report 9302827 (Version 1)
Quarter: 2013Q2

REPORT INFORMATION
  Report Type: Spontaneous
  Country: US (occurrence: None)
  Receive Date: 20130517
  Receipt Date: 20130517
  Transmission Date: 20140414
  Serious: Yes (Other)
  Sender: FDA-Public Use
  Company Number: ONY-2013-006

PATIENT
  Age: 0 Day
  Sex: Male
  Weight: .97 kg

DRUGS (1)
  1. INFASURF [Suspect]
     Indication: RESPIRATORY DISTRESS
     Route: 039
     Dates: start: 20130511

REACTIONS (2)
  - Cardio-respiratory arrest [None]
  - Endotracheal intubation complication [None]
